FAERS Safety Report 5907465-4 (Version None)
Quarter: 2008Q4

REPORT INFORMATION
  Report Type: 
  Country: None (occurrence: None)
  Receive Date: 20081003
  Receipt Date: 20080925
  Transmission Date: 20090506
  Serious: Yes (Hospitalization)
  Sender: FDA-Public Use
  Company Number: B0538748A

PATIENT
  Age: 89 Year
  Sex: Female

DRUGS (7)
  1. DEROXAT [Suspect]
     Indication: DRUG USE FOR UNKNOWN INDICATION
     Route: 048
     Dates: start: 20080101, end: 20080804
  2. INIPOMP [Suspect]
     Route: 048
     Dates: start: 20080401, end: 20080804
  3. DETENSIEL [Suspect]
     Dosage: 5MG PER DAY
     Route: 048
     Dates: end: 20080804
  4. HYDREA [Suspect]
     Dosage: 500MG PER DAY
     Route: 048
     Dates: start: 20080401, end: 20080804
  5. FORLAX [Concomitant]
     Route: 065
     Dates: end: 20080802
  6. ROCEPHIN [Concomitant]
     Route: 065
  7. CIPROFLOXACIN HYDROCHLORIDE [Concomitant]
     Route: 065

REACTIONS (2)
  - HEPATIC ENZYME INCREASED [None]
  - HEPATOCELLULAR INJURY [None]
